FAERS Safety Report 17039292 (Version 2)
Quarter: 2019Q4

REPORT INFORMATION
  Report Type: Spontaneous
  Country: US (occurrence: US)
  Receive Date: 20191115
  Receipt Date: 20191202
  Transmission Date: 20200122
  Serious: No
  Sender: FDA-Public Use
  Company Number: US-SA-2019SA313503

PATIENT
  Sex: Female

DRUGS (3)
  1. DUPIXENT [Suspect]
     Active Substance: DUPILUMAB
     Indication: ASTHMA
     Dosage: 300 MG, QOW
     Route: 058
     Dates: start: 20190326
  2. MELOXICAM. [Concomitant]
     Active Substance: MELOXICAM
     Indication: INFLAMMATION
  3. IBUPROFEN. [Concomitant]
     Active Substance: IBUPROFEN
     Indication: INFLAMMATION
     Dosage: UNK UNK, PRN

REACTIONS (2)
  - Arthralgia [Unknown]
  - Condition aggravated [Unknown]

NARRATIVE: CASE EVENT DATE: 201907
